FAERS Safety Report 4985077-7 (Version None)
Quarter: 2006Q2

REPORT INFORMATION
  Report Type: 
  Country: None (occurrence: None)
  Receive Date: 20060419
  Receipt Date: 20060411
  Transmission Date: 20061013
  Serious: Yes (Death)
  Sender: FDA-Public Use
  Company Number: FRWYE550011APR06

PATIENT

DRUGS (4)
  1. EFFEXOR XR [Suspect]
     Indication: PYRAMIDAL TRACT SYNDROME
     Dosage: 1 CAPSULE 1X PER 1 DAY TRANSPLACENTAL
     Route: 064
     Dates: start: 20030101
  2. DITROPAN [Suspect]
     Indication: PYRAMIDAL TRACT SYNDROME
     Dosage: 2.5 MG TOTAL DAILY TRANSPLACENTAL
     Route: 064
     Dates: start: 20030101
  3. LIORESAL [Suspect]
     Indication: PYRAMIDAL TRACT SYNDROME
     Dosage: 10 MG TOTAL DAILY TRANSPLACENTAL
     Route: 064
     Dates: start: 20030101
  4. RILUTEK [Suspect]
     Indication: PYRAMIDAL TRACT SYNDROME
     Dosage: 75 MG TOTAL DAILY TRANSPLACENTAL
     Route: 064
     Dates: start: 20030101

REACTIONS (6)
  - BRAIN MALFORMATION [None]
  - CEREBRAL CYST [None]
  - DRUG EXPOSURE DURING PREGNANCY [None]
  - EXOMPHALOS [None]
  - INTRA-UTERINE DEATH [None]
  - TALIPES [None]
